FAERS Safety Report 22879246 (Version 2)
Quarter: 2023Q4

REPORT INFORMATION
  Report Type: Report from Study
  Country: CA (occurrence: CA)
  Receive Date: 20230829
  Receipt Date: 20231202
  Transmission Date: 20240110
  Serious: Yes (Other)
  Sender: FDA-Public Use
  Company Number: CA-002147023-NVSC2023CA059340

PATIENT
  Age: 44 Year
  Sex: Female

DRUGS (1)
  1. KESIMPTA [Suspect]
     Active Substance: OFATUMUMAB
     Indication: Relapsing-remitting multiple sclerosis
     Dosage: UNK
     Route: 058
     Dates: start: 20230311

REACTIONS (5)
  - Diabetes mellitus [Unknown]
  - Fatigue [Unknown]
  - Tooth infection [Unknown]
  - Chills [Unknown]
  - Headache [Unknown]

NARRATIVE: CASE EVENT DATE: 20230312
